FAERS Safety Report 15809746 (Version 1)
Quarter: 2019Q1

REPORT INFORMATION
  Report Type: Spontaneous
  Country: US (occurrence: US)
  Receive Date: 20190111
  Receipt Date: 20190111
  Transmission Date: 20190417
  Serious: Yes (Other)
  Sender: FDA-Public Use
  Company Number: US-ROCHE-2062286

PATIENT
  Sex: Female
  Weight: 101.15 kg

DRUGS (16)
  1. RITUXAN [Suspect]
     Active Substance: RITUXIMAB
     Route: 042
     Dates: start: 20180122, end: 20180122
  2. BENADRYL [Concomitant]
     Active Substance: DIPHENHYDRAMINE HYDROCHLORIDE
     Indication: HYPERSENSITIVITY
     Route: 042
     Dates: start: 20171226, end: 20171226
  3. TYLENOL [Concomitant]
     Active Substance: ACETAMINOPHEN
     Route: 065
     Dates: start: 20180122, end: 20180122
  4. RITUXAN [Suspect]
     Active Substance: RITUXIMAB
     Indication: MIXED CONNECTIVE TISSUE DISEASE
     Route: 042
     Dates: start: 20170619, end: 20170619
  5. RITUXAN [Suspect]
     Active Substance: RITUXIMAB
     Route: 042
     Dates: start: 20171211, end: 20171211
  6. BENADRYL [Concomitant]
     Active Substance: DIPHENHYDRAMINE HYDROCHLORIDE
     Dosage: GIVEN 2 UNSPECIFIED DOSES DURING INFUSION
     Route: 042
     Dates: start: 20180122, end: 20180122
  7. BENADRYL [Concomitant]
     Active Substance: DIPHENHYDRAMINE HYDROCHLORIDE
     Route: 042
     Dates: start: 20180122, end: 20180122
  8. RITUXAN [Suspect]
     Active Substance: RITUXIMAB
     Dosage: WAS ONLY ABLE TO RECEIVE 12CC OF INFUSION
     Route: 042
     Dates: start: 20171226, end: 20171226
  9. BENADRYL [Concomitant]
     Active Substance: DIPHENHYDRAMINE HYDROCHLORIDE
     Indication: PREMEDICATION
     Dosage: GIVEN BEFORE INFUSION
     Route: 042
     Dates: start: 20171211, end: 20171211
  10. DEMEROL [Concomitant]
     Active Substance: MEPERIDINE HYDROCHLORIDE
     Indication: INFUSION RELATED REACTION
     Dosage: GIVEN 2 DOSES DURING REACTION-UNKNOWN AMOUNT
     Route: 042
     Dates: start: 20180122, end: 20180122
  11. RITUXAN [Suspect]
     Active Substance: RITUXIMAB
     Route: 042
     Dates: start: 20170703, end: 20170703
  12. TYLENOL [Concomitant]
     Active Substance: ACETAMINOPHEN
     Indication: PREMEDICATION
     Dosage: GIVEN BEFORE INFUSION
     Route: 065
     Dates: start: 20171211, end: 20171211
  13. HYDROCORTISONE. [Concomitant]
     Active Substance: HYDROCORTISONE
     Indication: HYPERSENSITIVITY
     Dosage: CRAMPS DURING RITUXAN INFUSION
     Route: 042
     Dates: start: 20171211, end: 20171211
  14. TYLENOL [Concomitant]
     Active Substance: ACETAMINOPHEN
     Indication: HYPERSENSITIVITY
     Dosage: GIVEN BEFORE INFUSION
     Route: 065
     Dates: start: 20171226, end: 20171226
  15. HYDROCORTISONE. [Concomitant]
     Active Substance: HYDROCORTISONE
     Dosage: GIVEN DURING RITUXAN INFUSION
     Route: 042
     Dates: start: 20171226, end: 20171226
  16. HYDROCORTISONE. [Concomitant]
     Active Substance: HYDROCORTISONE
     Dosage: GIVEN DURING RITUXAN INFUSION
     Route: 042
     Dates: start: 20180122, end: 20180122

REACTIONS (14)
  - Blood pressure decreased [Recovered/Resolved]
  - Chest pain [Recovered/Resolved]
  - Back pain [Recovered/Resolved]
  - Pain [Recovered/Resolved]
  - Peripheral swelling [Recovered/Resolved]
  - Dyspnoea [Recovered/Resolved]
  - Erythema [Recovered/Resolved]
  - Dizziness [Recovered/Resolved]
  - Feeling hot [Recovered/Resolved]
  - Feeling abnormal [Recovered/Resolved]
  - Hypersensitivity [Recovered/Resolved]
  - Muscle spasms [Recovered/Resolved]
  - Pruritus generalised [Recovered/Resolved]
  - Incoherent [Recovered/Resolved]

NARRATIVE: CASE EVENT DATE: 20171211
